FAERS Safety Report 10232356 (Version 1)
Quarter: 2014Q2

REPORT INFORMATION
  Report Type: Report from Study
  Country: NL (occurrence: NL)
  Receive Date: 20140612
  Receipt Date: 20140612
  Transmission Date: 20141212
  Serious: Yes (Death)
  Sender: FDA-Public Use
  Company Number: PHHY2014NL072180

PATIENT
  Sex: Male

DRUGS (3)
  1. ACLASTA [Suspect]
     Indication: OSTEOPOROSIS
     Dosage: 5 MG, ONCE PER 52 WEEKS
     Route: 042
     Dates: start: 20100614
  2. ACLASTA [Suspect]
     Dosage: 5 MG, ONCE PER 52 WEEKS
     Route: 042
     Dates: start: 20120614
  3. ACLASTA [Suspect]
     Dosage: 5 MG, ONCE PER 52 WEEKS
     Route: 042
     Dates: start: 20130611

REACTIONS (1)
  - Pneumonia [Fatal]
